FAERS Safety Report 6888661-9 (Version None)
Quarter: 2010Q3

REPORT INFORMATION
  Report Type: 
  Country: None (occurrence: None)
  Receive Date: 20100730
  Receipt Date: 20100724
  Transmission Date: 20110219
  Serious: Yes (Hospitalization)
  Sender: FDA-Public Use
  Company Number: US-AMGEN-QUU426929

PATIENT
  Sex: Female

DRUGS (2)
  1. ENBREL [Suspect]
     Indication: RHEUMATOID ARTHRITIS
     Route: 058
     Dates: start: 20050201, end: 20091201
  2. ENBREL [Suspect]
     Indication: PSORIASIS

REACTIONS (4)
  - ARTHRALGIA [None]
  - JOINT SWELLING [None]
  - MENISCAL DEGENERATION [None]
  - PSORIASIS [None]
